FAERS Safety Report 8716235 (Version 2)
Quarter: 2013Q4

REPORT INFORMATION
  Report Type: Report from Study
  Country: US (occurrence: US)
  Receive Date: 20120810
  Receipt Date: 20131108
  Transmission Date: 20140711
  Serious: Yes (Congenital Anomaly)
  Sender: FDA-Public Use
  Company Number: US-009507513-1208USA001148

PATIENT
  Sex: 0

DRUGS (2)
  1. RIBAVIRIN (+) INTERFERON ALFA-2B [Suspect]
     Route: 064
  2. PEGINTRON [Suspect]
     Dosage: UNK
     Route: 064

REACTIONS (2)
  - Trisomy 21 [Unknown]
  - Foetal exposure during pregnancy [Unknown]
